FAERS Safety Report 6490572-8 (Version None)
Quarter: 2009Q4

REPORT INFORMATION
  Report Type: 
  Country: None (occurrence: None)
  Receive Date: 20091211
  Receipt Date: 20091203
  Transmission Date: 20100525
  Serious: Yes (Other)
  Sender: FDA-Public Use
  Company Number: US-BAYER-200941920NA

PATIENT
  Age: 39 Year
  Sex: Female
  Weight: 77 kg

DRUGS (1)
  1. MAGNEVIST [Suspect]
     Indication: NUCLEAR MAGNETIC RESONANCE IMAGING
     Dosage: 18 ^MG^ (FROM 20 ^MG^ BOTTLE) VIA IV BUTTERFLY INTO LEFT FOREARM
     Route: 042
     Dates: start: 20091203, end: 20091203

REACTIONS (3)
  - ORAL DISCOMFORT [None]
  - SNEEZING [None]
  - THROAT TIGHTNESS [None]
